FAERS Safety Report 8997859 (Version 2)
Quarter: 2013Q1

REPORT INFORMATION
  Report Type: Report from Study
  Country: JP (occurrence: JP)
  Receive Date: 20130104
  Receipt Date: 20130207
  Transmission Date: 20140127
  Serious: Yes (Other)
  Sender: FDA-Public Use
  Company Number: JP-ROCHE-1174889

PATIENT
  Sex: Male
  Weight: 67 kg

DRUGS (20)
  1. METHOXY POLYETHYLENE GLYCOL-EPOETIN BETA [Suspect]
     Indication: NEPHROGENIC ANAEMIA
     Route: 042
     Dates: start: 20110920, end: 20120113
  2. METHOXY POLYETHYLENE GLYCOL-EPOETIN BETA [Suspect]
     Indication: NEPHROGENIC ANAEMIA
     Route: 042
     Dates: start: 20120210, end: 20120210
  3. METHOXY POLYETHYLENE GLYCOL-EPOETIN BETA [Suspect]
     Indication: NEPHROGENIC ANAEMIA
     Route: 042
     Dates: start: 20120309, end: 20120309
  4. CALTAN [Concomitant]
     Indication: DIABETIC NEPHROPATHY
     Route: 048
  5. CIRCANETTEN [Concomitant]
     Route: 048
  6. LAC-B [Concomitant]
     Route: 048
  7. PURSENNID [Concomitant]
     Route: 048
  8. YOKUKANSAN [Concomitant]
     Route: 048
  9. FASTIC [Concomitant]
     Indication: DIABETES MELLITUS
     Route: 048
  10. PRORENAL [Concomitant]
     Indication: PERIPHERAL ARTERIAL OCCLUSIVE DISEASE
     Route: 048
  11. DIOVAN [Concomitant]
     Indication: HYPERTENSION
     Route: 048
  12. BAYASPIRIN [Concomitant]
     Route: 048
  13. ALOSITOL [Concomitant]
     Route: 048
  14. DORAL [Concomitant]
     Route: 048
  15. EPADEL [Concomitant]
     Indication: PERIPHERAL ARTERIAL OCCLUSIVE DISEASE
     Dosage: DRUG REPORTED AS EPADEL S
     Route: 048
  16. PLETAAL [Concomitant]
     Indication: PERIPHERAL ARTERIAL OCCLUSIVE DISEASE
     Route: 048
  17. TAKEPRON [Concomitant]
     Route: 048
  18. ALLOID G [Concomitant]
     Route: 048
  19. OXAROL [Concomitant]
     Route: 042
  20. FESIN [Concomitant]
     Indication: DIABETIC NEPHROPATHY
     Route: 042

REACTIONS (1)
  - Anaemia [Unknown]
